FAERS Safety Report 10120775 (Version 1)
Quarter: 2014Q2

REPORT INFORMATION
  Report Type: Spontaneous
  Country: CA (occurrence: CA)
  Receive Date: 20140425
  Receipt Date: 20140425
  Transmission Date: 20141212
  Serious: Yes (Other)
  Sender: FDA-Public Use
  Company Number: CHPA2014CA005675

PATIENT
  Age: 70 Year
  Sex: Female

DRUGS (1)
  1. EX-LAX EXTRA STRENGTH [Suspect]
     Route: 048

REACTIONS (1)
  - Drug dependence [Unknown]
